FAERS Safety Report 4887488-7 (Version None)
Quarter: 2006Q1

REPORT INFORMATION
  Report Type: 
  Country: None (occurrence: None)
  Receive Date: 20060118
  Receipt Date: 20060104
  Transmission Date: 20060701
  Serious: Yes (Other)
  Sender: FDA-Public Use
  Company Number: FR200601000562

PATIENT
  Age: 63 Year
  Sex: Female

DRUGS (8)
  1. FORTEO [Suspect]
     Indication: OSTEOPOROSIS
     Dosage: 20 UG/DAY, UNK, SUBCUTANEOUS
     Route: 058
     Dates: start: 20050915
  2. FORTEO PEN 9250MCG/ML) (FORTEO PEN 250MCG/ML (3ML)) PEN, DISPOSABLE [Concomitant]
  3. PROPRANOLOL [Concomitant]
  4. MONO-TILDIEM-SLOW RELEASE (DILTIAZEM HYDROCHLORIDE) [Concomitant]
  5. PLAVIX [Concomitant]
  6. MORPHINE SULFATE [Concomitant]
  7. CLONAZEPAM [Concomitant]
  8. LANSOPRAZOLE [Concomitant]

REACTIONS (1)
  - WEIGHT DECREASED [None]
